FAERS Safety Report 25318402 (Version 4)
Quarter: 2025Q3

REPORT INFORMATION
  Report Type: Spontaneous
  Country: US (occurrence: US)
  Receive Date: 20250515
  Receipt Date: 20250818
  Transmission Date: 20251021
  Serious: No
  Sender: PFIZER
  Company Number: US-PFIZER INC-PV202500055640

PATIENT
  Age: 16 Year
  Sex: Male
  Weight: 47.5 kg

DRUGS (3)
  1. NGENLA [Suspect]
     Active Substance: SOMATROGON-GHLA
     Indication: Hypopituitarism
     Dosage: 31 MG, WEEKLY (BEFORE BED PM)
     Route: 058
     Dates: start: 20250529
  2. NGENLA [Suspect]
     Active Substance: SOMATROGON-GHLA
     Indication: Short stature
  3. NGENLA [Suspect]
     Active Substance: SOMATROGON-GHLA
     Indication: Growth hormone deficiency

REACTIONS (2)
  - Blood growth hormone increased [Unknown]
  - Injection site pain [Unknown]

NARRATIVE: CASE EVENT DATE: 20250101
